FAERS Safety Report 14763926 (Version 1)
Quarter: 2018Q2

REPORT INFORMATION
  Report Type: Spontaneous
  Country: FR (occurrence: FR)
  Receive Date: 20180416
  Receipt Date: 20180416
  Transmission Date: 20180711
  Serious: Yes (Other)
  Sender: FDA-Public Use
  Company Number: FR-MYLANLABS-2018M1023250

PATIENT
  Age: 92 Year
  Sex: Female

DRUGS (1)
  1. MIDAZOLAM [Suspect]
     Active Substance: MIDAZOLAM HYDROCHLORIDE
     Indication: SLEEP DISORDER
     Dosage: 40 MG SUR 10 H
     Route: 042

REACTIONS (2)
  - Incorrect dose administered [Recovered/Resolved]
  - Sedation complication [Recovered/Resolved]

NARRATIVE: CASE EVENT DATE: 20180127
